FAERS Safety Report 21734321 (Version 1)
Quarter: 2022Q4

REPORT INFORMATION
  Report Type: Spontaneous
  Country: FR (occurrence: FR)
  Receive Date: 20221215
  Receipt Date: 20221215
  Transmission Date: 20230112
  Serious: Yes (Other)
  Sender: FDA-Public Use
  Company Number: None

PATIENT
  Age: 51 Year
  Sex: Female

DRUGS (10)
  1. ATROPINE SULFATE [Suspect]
     Active Substance: ATROPINE SULFATE
     Indication: Surgery
     Dates: start: 20220725, end: 20220725
  2. MAGNESIUM [Suspect]
     Active Substance: MAGNESIUM
     Indication: Surgery
     Dates: start: 20220725, end: 20220725
  3. NEOSTIGMINE [Suspect]
     Active Substance: NEOSTIGMINE
     Indication: Surgery
     Dates: start: 20220725, end: 20220725
  4. CEFAZOLIN SODIUM [Concomitant]
     Active Substance: CEFAZOLIN SODIUM
     Indication: Surgery
     Dates: start: 20220725, end: 20220725
  5. ATRACURIUM [Concomitant]
     Active Substance: ATRACURIUM
     Indication: Surgery
     Dates: start: 20220725, end: 20220725
  6. TRAMADOL [Concomitant]
     Active Substance: TRAMADOL
     Indication: Surgery
     Dates: start: 20220725, end: 20220725
  7. XYLOCAINE [Concomitant]
     Active Substance: LIDOCAINE HYDROCHLORIDE
     Indication: Surgery
     Dosage: STRENGTH: 1% WITHOUT PRESERVATIVE
     Dates: start: 20220725, end: 20220725
  8. EPHEDRINE [Concomitant]
     Active Substance: EPHEDRINE
     Indication: Surgery
     Dates: start: 20220725, end: 20220725
  9. SUFENTANIL [Concomitant]
     Active Substance: SUFENTANIL
     Indication: Surgery
     Dates: start: 20220725, end: 20220725
  10. DEXAMETHASONE [Concomitant]
     Active Substance: DEXAMETHASONE
     Indication: Surgery
     Dates: start: 20220725, end: 20220725

REACTIONS (3)
  - Ventricular tachycardia [Recovered/Resolved]
  - Hypotension [Recovered/Resolved]
  - Bronchospasm [Recovered/Resolved]

NARRATIVE: CASE EVENT DATE: 20220725
